FAERS Safety Report 14481769 (Version 2)
Quarter: 2018Q1

REPORT INFORMATION
  Report Type: Spontaneous
  Country: US (occurrence: US)
  Receive Date: 20180202
  Receipt Date: 20180205
  Transmission Date: 20180509
  Serious: Yes (Other)
  Sender: FDA-Public Use
  Company Number: US-009507513-1709USA001853

PATIENT

DRUGS (2)
  1. NORVASC [Suspect]
     Active Substance: AMLODIPINE BESYLATE
     Dosage: UNK
  2. PRINIVIL [Suspect]
     Active Substance: LISINOPRIL
     Dosage: UNK
     Route: 048

REACTIONS (1)
  - Deafness [Unknown]
